FAERS Safety Report 14881088 (Version 1)
Quarter: 2018Q2

REPORT INFORMATION
  Report Type: Spontaneous
  Country: US (occurrence: US)
  Receive Date: 20180511
  Receipt Date: 20180511
  Transmission Date: 20180711
  Serious: Yes (Other)
  Sender: FDA-Public Use
  Company Number: US-HORIZON-DUE-0144-2018

PATIENT
  Age: 22 Year
  Sex: Male

DRUGS (1)
  1. DUEXIS [Suspect]
     Active Substance: FAMOTIDINE\IBUPROFEN
     Indication: FOOT FRACTURE
     Dosage: 2 TABLETS PER DAY
     Dates: start: 20180413, end: 201805

REACTIONS (2)
  - Rectal haemorrhage [Unknown]
  - Off label use [Unknown]
